FAERS Safety Report 9893096 (Version 1)
Quarter: 2014Q1

REPORT INFORMATION
  Report Type: Other
  Country: TR (occurrence: TR)
  Receive Date: 20140213
  Receipt Date: 20140213
  Transmission Date: 20141002
  Serious: Yes (Other)
  Sender: FDA-Public Use
  Company Number: TR-BRISTOL-MYERS SQUIBB COMPANY-20169314

PATIENT
  Age: 63 Year
  Sex: Female

DRUGS (2)
  1. WARFARIN SODIUM [Suspect]
     Indication: PULMONARY EMBOLISM
  2. HERBAL MIXTURE CONTAINING HYPERICUM PERFORATUM + PASSIFLORA INCARNATA [Interacting]
     Indication: ARTHRALGIA

REACTIONS (3)
  - Haematuria [Recovered/Resolved]
  - Rash [Recovered/Resolved]
  - Drug interaction [Unknown]
